FAERS Safety Report 7324771-X (Version None)
Quarter: 2011Q1

REPORT INFORMATION
  Report Type: 
  Country: None (occurrence: None)
  Receive Date: 20110301
  Receipt Date: 20110216
  Transmission Date: 20110831
  Serious: Yes (Death)
  Sender: FDA-Public Use
  Company Number: CH-CELGENEUS-151-21880-11021899

PATIENT
  Sex: Female

DRUGS (5)
  1. REVLIMID [Suspect]
     Dosage: 10 MILLIGRAM
     Route: 048
     Dates: end: 20101201
  2. HYDROXYUREA [Concomitant]
     Route: 065
  3. WHOLE BLOOD [Concomitant]
     Route: 065
  4. VIDAZA [Suspect]
     Route: 065
  5. REVLIMID [Suspect]
     Dosage: 5 MILLIGRAM
     Route: 048
     Dates: start: 20110101

REACTIONS (3)
  - ACUTE MYELOID LEUKAEMIA [None]
  - NEOPLASM MALIGNANT [None]
  - FATIGUE [None]
